FAERS Safety Report 8309789-2 (Version None)
Quarter: 2012Q2

REPORT INFORMATION
  Report Type: 
  Country: None (occurrence: None)
  Receive Date: 20120425
  Receipt Date: 20120418
  Transmission Date: 20120825
  Serious: Yes (Other)
  Sender: FDA-Public Use
  Company Number: PHHY2012VE034539

PATIENT
  Sex: Female

DRUGS (2)
  1. ZOLEDRONOC ACID [Suspect]
     Indication: OSTEOPOROSIS
     Dosage: 5 MG, UNK
     Route: 042
     Dates: start: 20110101
  2. CALCIUM CITRATE COLECALCIFEROL [Concomitant]
     Indication: OSTEOPOROSIS
     Dosage: 1500 MG, (EQUIV. TO 315MG OF ELEMENTAL CALCIUM) VIT D3 200UI

REACTIONS (3)
  - LACERATION [None]
  - FALL [None]
  - BODY HEIGHT DECREASED [None]
